FAERS Safety Report 6371395-7 (Version None)
Quarter: 2009Q3

REPORT INFORMATION
  Report Type: 
  Country: None (occurrence: None)
  Receive Date: 20090923
  Receipt Date: 20070920
  Transmission Date: 20100115
  Serious: Yes (Other)
  Sender: FDA-Public Use
  Company Number: US-ASTRAZENECA-2007UW09446

PATIENT
  Age: 35 Year
  Sex: Female
  Weight: 94.3 kg

DRUGS (16)
  1. SEROQUEL [Suspect]
     Indication: MOOD SWINGS
     Route: 048
     Dates: start: 20030101, end: 20060101
  2. SEROQUEL [Suspect]
     Dosage: 25MG-250MG
     Route: 048
     Dates: start: 20050331
  3. EFFEXOR [Concomitant]
  4. NIFEDIPINE [Concomitant]
  5. ATIVAN [Concomitant]
  6. LIPITOR [Concomitant]
  7. WELLBUTRIN [Concomitant]
  8. LEVAQUIN [Concomitant]
  9. LAMICTAL [Concomitant]
  10. FLEXERIL [Concomitant]
  11. TRAZODONE [Concomitant]
  12. OXYCODONE [Concomitant]
  13. IBUPROFEN [Concomitant]
  14. METFORMIN HCL [Concomitant]
  15. NAPROXEN [Concomitant]
  16. FAMOTIDINE [Concomitant]

REACTIONS (2)
  - DIABETES MELLITUS [None]
  - NEUROLEPTIC MALIGNANT SYNDROME [None]
